FAERS Safety Report 4727525-3 (Version None)
Quarter: 2005Q3

REPORT INFORMATION
  Report Type: 
  Country: None (occurrence: None)
  Receive Date: 20050727
  Receipt Date: 20050727
  Transmission Date: 20060218
  Serious: No
  Sender: FDA-Public Use
  Company Number: None

PATIENT
  Age: 41 Year
  Sex: Male
  Weight: 89.8122 kg

DRUGS (2)
  1. OXYCODONE ER    10MG      ENDO [Suspect]
     Indication: NEUROPATHY
     Dosage: 1    QID     ORAL
     Route: 048
     Dates: start: 20050630, end: 20050713
  2. OXYCODONE ER    10MG      ENDO [Suspect]
     Indication: TENOSYNOVITIS
     Dosage: 1    QID     ORAL
     Route: 048
     Dates: start: 20050630, end: 20050713

REACTIONS (3)
  - NAUSEA [None]
  - THERAPEUTIC RESPONSE UNEXPECTED WITH DRUG SUBSTITUTION [None]
  - VOMITING [None]
